FAERS Safety Report 7932392-0 (Version None)
Quarter: 2011Q4

REPORT INFORMATION
  Report Type: 
  Country: None (occurrence: None)
  Receive Date: 20111122
  Receipt Date: 20111114
  Transmission Date: 20120403
  Serious: Yes (Hospitalization)
  Sender: FDA-Public Use
  Company Number: US-BIOGENIDEC-2010BI003699

PATIENT
  Age: 49 Year
  Sex: Female
  Weight: 93 kg

DRUGS (3)
  1. TYSABRI [Suspect]
     Indication: MULTIPLE SCLEROSIS
     Route: 042
     Dates: start: 20070822, end: 20110926
  2. FLOVENT [Concomitant]
     Indication: ASTHMA
  3. INHALER (NOS) [Concomitant]
     Indication: ASTHMA

REACTIONS (7)
  - PRINZMETAL ANGINA [None]
  - GASTROOESOPHAGEAL REFLUX DISEASE [None]
  - STATUS ASTHMATICUS [None]
  - PNEUMONIA ASPIRATION [None]
  - COUGH [None]
  - SLEEP APNOEA SYNDROME [None]
  - BRONCHITIS [None]
